FAERS Safety Report 14205606 (Version 4)
Quarter: 2018Q4

REPORT INFORMATION
  Report Type: Spontaneous
  Country: JP (occurrence: JP)
  Receive Date: 20171120
  Receipt Date: 20181101
  Transmission Date: 20190204
  Serious: Yes (Hospitalization, Other)
  Sender: FDA-Public Use
  Company Number: JP-EISAI MEDICAL RESEARCH-EC-2017-033256

PATIENT
  Sex: Male

DRUGS (5)
  1. LOPEMIN [Concomitant]
     Active Substance: LOPERAMIDE HYDROCHLORIDE
     Indication: PRODUCT USED FOR UNKNOWN INDICATION
     Dosage: UNKNOWN
  2. LENVIMA [Suspect]
     Active Substance: LENVATINIB
     Indication: FOLLICULAR THYROID CANCER
     Route: 048
     Dates: start: 20160913, end: 2016
  3. LENVIMA [Suspect]
     Active Substance: LENVATINIB
     Route: 048
     Dates: start: 2016, end: 2018
  4. RANMARK [Suspect]
     Active Substance: DENOSUMAB
     Indication: METASTASES TO BONE
     Dosage: UNKNOWN
     Route: 058
     Dates: start: 20130206
  5. LENVIMA [Suspect]
     Active Substance: LENVATINIB
     Dosage: DOSE REDUCTION, SUSPENSION, RESUMPTION, DOSE INCREASE
     Route: 048
     Dates: start: 2016, end: 2016

REACTIONS (8)
  - Osteonecrosis of jaw [Unknown]
  - Malaise [Unknown]
  - Diarrhoea [Recovered/Resolved]
  - Trismus [Unknown]
  - Thyroid function test abnormal [Unknown]
  - Decreased appetite [Unknown]
  - Jaw fistula [Unknown]
  - Platelet count decreased [Unknown]

NARRATIVE: CASE EVENT DATE: 2016
